FAERS Safety Report 13713532 (Version 3)
Quarter: 2017Q3

REPORT INFORMATION
  Report Type: Spontaneous
  Country: IN (occurrence: IN)
  Receive Date: 20170704
  Receipt Date: 20170811
  Transmission Date: 20171127
  Serious: Yes (Life-Threatening, Hospitalization, Other)
  Sender: FDA-Public Use
  Company Number: IN-CONCORDIA PHARMACEUTICALS INC.-E2B_00008216

PATIENT
  Age: 38 Year
  Sex: Male

DRUGS (5)
  1. THALIDOMIDE [Concomitant]
     Active Substance: THALIDOMIDE
     Indication: LEPROMATOUS LEPROSY
  2. CLOFAZIMINE [Concomitant]
     Active Substance: CLOFAZIMINE
     Indication: LEPROMATOUS LEPROSY
  3. ACETYLSALICYLIC ACID [Concomitant]
     Active Substance: ASPIRIN
     Indication: LEPROMATOUS LEPROSY
  4. PREDNISOLONE. [Suspect]
     Active Substance: PREDNISOLONE
     Indication: LEPROMATOUS LEPROSY
     Dosage: VARIABLE DOSES (20-40 MG/DAY)
     Route: 048
  5. PREDNISOLONE. [Suspect]
     Active Substance: PREDNISOLONE
     Route: 048

REACTIONS (3)
  - Strongyloidiasis [Recovering/Resolving]
  - Generalised oedema [Recovering/Resolving]
  - Anaemia [Recovering/Resolving]
